FAERS Safety Report 8464763-0 (Version None)
Quarter: 2012Q2

REPORT INFORMATION
  Report Type: 
  Country: None (occurrence: None)
  Receive Date: 20120626
  Receipt Date: 20120614
  Transmission Date: 20120825
  Serious: Yes (Other)
  Sender: FDA-Public Use
  Company Number: IN-JNJFOC-20120607844

PATIENT
  Age: 18 Year
  Sex: Female

DRUGS (4)
  1. TOPIRAMATE [Suspect]
     Route: 048
  2. TRIHEXYPHENIDYL HCL [Suspect]
     Indication: PRODUCT USED FOR UNKNOWN INDICATION
     Route: 065
  3. TOPIRAMATE [Suspect]
     Indication: WEIGHT INCREASED
     Route: 048
  4. RISPERIDONE [Suspect]
     Indication: BIPOLAR DISORDER
     Route: 065

REACTIONS (4)
  - AMENORRHOEA [None]
  - POLYCYSTIC OVARIES [None]
  - THERAPEUTIC RESPONSE UNEXPECTED [None]
  - BLOOD PROLACTIN INCREASED [None]
